FAERS Safety Report 16260080 (Version 1)
Quarter: 2019Q2

REPORT INFORMATION
  Report Type: Spontaneous
  Country: RO (occurrence: RO)
  Receive Date: 20190501
  Receipt Date: 20190501
  Transmission Date: 20190711
  Serious: Yes (Other)
  Sender: FDA-Public Use
  Company Number: RO-ASTRAZENECA-2019SE62969

PATIENT
  Age: 69 Year
  Sex: Male

DRUGS (5)
  1. ASA [Concomitant]
     Active Substance: ASPIRIN
     Indication: STENT PLACEMENT
     Dates: start: 201804
  2. BRILIQUE [Suspect]
     Active Substance: TICAGRELOR
     Indication: STENT PLACEMENT
     Route: 048
     Dates: start: 201804
  3. ANTIDIABETICS [Concomitant]
  4. BRILIQUE [Suspect]
     Active Substance: TICAGRELOR
     Indication: ANGINA UNSTABLE
     Route: 048
     Dates: start: 201804
  5. ASA [Concomitant]
     Active Substance: ASPIRIN
     Indication: ANGINA UNSTABLE
     Dates: start: 201804

REACTIONS (1)
  - Angina unstable [Unknown]
